FAERS Safety Report 22592146 (Version 1)
Quarter: 2023Q2

REPORT INFORMATION
  Report Type: Spontaneous
  Country: US (occurrence: US)
  Receive Date: 20230612
  Receipt Date: 20230612
  Transmission Date: 20230721
  Serious: Yes (Hospitalization)
  Sender: FDA-Public Use
  Company Number: US-CELLTRION INC.-2023US011789

PATIENT

DRUGS (1)
  1. RITUXIMAB [Suspect]
     Active Substance: RITUXIMAB
     Indication: Granulomatosis with polyangiitis
     Dosage: RECEIVED MAINTENANCE-LEVEL DOSING (A SINGLE INFUSION OF 500 MG)

REACTIONS (2)
  - Oesophagitis [Recovering/Resolving]
  - Colitis [Unknown]
